FAERS Safety Report 9595238 (Version 2)
Quarter: 2013Q4

REPORT INFORMATION
  Report Type: Spontaneous
  Country: US (occurrence: US)
  Receive Date: 20131004
  Receipt Date: 20131021
  Transmission Date: 20140711
  Serious: Yes (Hospitalization, Other)
  Sender: FDA-Public Use
  Company Number: US-BAYER-2013-119717

PATIENT
  Age: 17 Year
  Sex: Female

DRUGS (3)
  1. YAZ [Suspect]
     Dosage: UNK
  2. YASMIN [Suspect]
     Dosage: UNK
  3. METFORMIN [Concomitant]
     Dosage: UNK

REACTIONS (7)
  - Deep vein thrombosis [None]
  - Subclavian vein thrombosis [None]
  - Axillary vein thrombosis [None]
  - Injury [None]
  - Pain [None]
  - Pain [None]
  - Pulmonary embolism [None]
